FAERS Safety Report 23979301 (Version 3)
Quarter: 2024Q3

REPORT INFORMATION
  Report Type: Spontaneous
  Country: US (occurrence: US)
  Receive Date: 20240615
  Receipt Date: 20240722
  Transmission Date: 20241017
  Serious: Yes (Hospitalization, Other)
  Sender: ACCORD
  Company Number: US-Accord-428710

PATIENT
  Age: 73 Year
  Sex: Female
  Weight: 68.9 kg

DRUGS (8)
  1. ETOPOSIDE [Suspect]
     Active Substance: ETOPOSIDE
     Indication: Small cell lung cancer limited stage
     Dosage: Q3W, DAY 1 TO DAY 3 OF EACH CYCLE
     Route: 042
     Dates: start: 20240320
  2. CARBOPLATIN [Concomitant]
     Active Substance: CARBOPLATIN
     Indication: Small cell lung cancer limited stage
     Dosage: Q3W, ON THE DAY 1 OF EACH CYCLE,
     Route: 042
     Dates: start: 20240320
  3. OLODATEROL\TIOTROPIUM [Concomitant]
     Active Substance: OLODATEROL\TIOTROPIUM
     Indication: Dyspnoea
     Dosage: 2.5MG, INHALER
     Dates: start: 202312
  4. LEVOTHYROXINE [Concomitant]
     Active Substance: LEVOTHYROXINE\LEVOTHYROXINE SODIUM
     Indication: Hypothyroidism
     Dosage: 88MG
     Route: 048
     Dates: start: 1984
  5. IBUPROFEN [Concomitant]
     Active Substance: IBUPROFEN
     Indication: Arthralgia
     Dosage: 200MG
     Route: 048
     Dates: start: 202312
  6. NYSTATIN [Concomitant]
     Active Substance: NYSTATIN
     Dosage: 5ML
     Route: 048
     Dates: start: 20240208
  7. ETOPOSIDE [Suspect]
     Active Substance: ETOPOSIDE
     Indication: Small cell lung cancer limited stage
     Dosage: Q3W, DAY 1 TO DAY 3 OF EACH CYCLE
     Route: 042
     Dates: start: 20240507, end: 20240509
  8. CARBOPLATIN [Concomitant]
     Active Substance: CARBOPLATIN
     Indication: Small cell lung cancer limited stage
     Dosage: Q3W
     Route: 042
     Dates: start: 20240507, end: 20240507

REACTIONS (1)
  - Pancytopenia [Recovered/Resolved with Sequelae]

NARRATIVE: CASE EVENT DATE: 20240520
